FAERS Safety Report 15288386 (Version 1)
Quarter: 2018Q3

REPORT INFORMATION
  Report Type: Spontaneous
  Country: US (occurrence: US)
  Receive Date: 20180802
  Receipt Date: 20180802
  Transmission Date: 20181010
  Serious: No
  Sender: FDA-Public Use
  Company Number: None

PATIENT
  Age: 29 Year
  Sex: Female
  Weight: 54.43 kg

DRUGS (2)
  1. PARAGARD T 380A [Suspect]
     Active Substance: COPPER
     Dates: start: 20090901
  2. ADVANCED TRS HEAVY METAL DETOX [Concomitant]

REACTIONS (5)
  - Weight increased [None]
  - Urticaria [None]
  - Herpes zoster [None]
  - Abortion spontaneous [None]
  - Drug hypersensitivity [None]

NARRATIVE: CASE EVENT DATE: 20090901
